FAERS Safety Report 6795681-1 (Version None)
Quarter: 2010Q2

REPORT INFORMATION
  Report Type: 
  Country: None (occurrence: None)
  Receive Date: 20100622
  Receipt Date: 20100607
  Transmission Date: 20101027
  Serious: Yes (Life-Threatening)
  Sender: FDA-Public Use
  Company Number: 1-22930455

PATIENT
  Age: 40 Year
  Sex: Male

DRUGS (5)
  1. NORTRIPTYLINE HCL [Suspect]
     Indication: DEPRESSION
     Dates: end: 20090101
  2. MIANSERIN HYDROCHLORIDE [Suspect]
     Indication: DEPRESSION
  3. SERTRALINE HCL [Suspect]
     Indication: DEPRESSION
  4. BROTIZOLAM [Suspect]
     Indication: DEPRESSION
  5. AMANTADINE HCL [Suspect]
     Indication: DEPRESSION

REACTIONS (6)
  - CONVULSION [None]
  - ELECTROCARDIOGRAM ABNORMAL [None]
  - ELECTROCARDIOGRAM ST SEGMENT ELEVATION [None]
  - FALL [None]
  - RESUSCITATION [None]
  - SYNCOPE [None]
